FAERS Safety Report 24195093 (Version 2)
Quarter: 2024Q3

REPORT INFORMATION
  Report Type: Report from Study
  Country: US (occurrence: US)
  Receive Date: 20240809
  Receipt Date: 20240924
  Transmission Date: 20241016
  Serious: Yes (Other)
  Sender: NOVARTIS
  Company Number: US-002147023-NVSC2024US062842

PATIENT
  Age: 54 Year
  Sex: Female

DRUGS (3)
  1. KESIMPTA [Suspect]
     Active Substance: OFATUMUMAB
     Indication: Relapsing multiple sclerosis
     Dosage: 20 MG, QMO
     Route: 058
     Dates: start: 20231102
  2. KESIMPTA [Suspect]
     Active Substance: OFATUMUMAB
     Dosage: 20 MG, QMO
     Route: 058
     Dates: start: 20240721
  3. HYDROCODONE [Concomitant]
     Active Substance: HYDROCODONE
     Indication: Product used for unknown indication
     Dosage: UNK
     Route: 065
     Dates: start: 20240320

REACTIONS (15)
  - Multiple sclerosis relapse [Unknown]
  - Muscular weakness [Unknown]
  - Feeling abnormal [Unknown]
  - Urinary tract infection [Unknown]
  - Stress [Unknown]
  - Product supply issue [Unknown]
  - Therapeutic product effect decreased [Unknown]
  - Headache [Unknown]
  - Dizziness [Unknown]
  - Head discomfort [Unknown]
  - Fatigue [Unknown]
  - Musculoskeletal discomfort [Unknown]
  - Product use issue [Unknown]
  - Myalgia [Unknown]
  - Sluggishness [Unknown]

NARRATIVE: CASE EVENT DATE: 20231102
